FAERS Safety Report 8343693-9 (Version None)
Quarter: 2012Q2

REPORT INFORMATION
  Report Type: 
  Country: None (occurrence: None)
  Receive Date: 20120503
  Receipt Date: 20120424
  Transmission Date: 20120825
  Serious: Yes (Hospitalization, Other)
  Sender: FDA-Public Use
  Company Number: 2012SP021902

PATIENT
  Age: 34 Year
  Sex: Female
  Weight: 99.8 kg

DRUGS (10)
  1. NPLATE [Suspect]
     Indication: IDIOPATHIC THROMBOCYTOPENIC PURPURA
     Dosage: SC
     Route: 058
     Dates: start: 20100420, end: 20100920
  2. TRANEXAMIC ACID [Suspect]
     Indication: PRODUCT USED FOR UNKNOWN INDICATION
     Dosage: 1 DF;QID
     Dates: start: 20100922, end: 20100928
  3. VINCRISTINE [Concomitant]
  4. RITUXAN [Suspect]
     Indication: HAEMATOLOGY TEST ABNORMAL
     Dosage: 375 MG/M2;BIW;IV
     Route: 042
     Dates: start: 20100917, end: 20100924
  5. IMMUNE GLOBULIN (HUMAN) [Suspect]
     Indication: HAEMATOLOGY TEST ABNORMAL
     Dosage: 1000 MG/KG;IV ; 1000 MG/KG;IV
     Route: 042
     Dates: start: 20100922, end: 20100923
  6. HUMAN ANTI D [Concomitant]
  7. NORETHINDRONE [Concomitant]
  8. DEXAMETHASONE [Suspect]
     Indication: PRODUCT USED FOR UNKNOWN INDICATION
     Dates: start: 20100905
  9. DEXAMETHASONE [Suspect]
     Indication: PRODUCT USED FOR UNKNOWN INDICATION
     Dates: start: 20100907, end: 20101010
  10. LANSOPRAZOLE [Suspect]
     Indication: GASTROOESOPHAGEAL REFLUX PROPHYLAXIS
     Dosage: 30 MG;PO
     Route: 048
     Dates: start: 20100907, end: 20100928

REACTIONS (8)
  - HAEMORRHAGE [None]
  - MELAENA [None]
  - RASH MACULO-PAPULAR [None]
  - ARTHRALGIA [None]
  - VAGINAL HAEMORRHAGE [None]
  - RASH ERYTHEMATOUS [None]
  - RECTAL HAEMORRHAGE [None]
  - HAEMOGLOBIN DECREASED [None]
